FAERS Safety Report 18404260 (Version 1)
Quarter: 2020Q4

REPORT INFORMATION
  Report Type: Spontaneous
  Country: US (occurrence: US)
  Receive Date: 20201020
  Receipt Date: 20201020
  Transmission Date: 20210114
  Serious: No
  Sender: FDA-Public Use
  Company Number: US-AJANTA PHARMA USA INC.-2092938

PATIENT
  Age: 60 Year
  Sex: Male

DRUGS (1)
  1. TADALAFIL (ANDA 209654) [Suspect]
     Active Substance: TADALAFIL
     Indication: PROSTATOMEGALY
     Route: 048

REACTIONS (2)
  - Product odour abnormal [Recovered/Resolved]
  - Therapeutic product effect decreased [Unknown]
